FAERS Safety Report 20207259 (Version 2)
Quarter: 2021Q4

REPORT INFORMATION
  Report Type: Spontaneous
  Country: US (occurrence: US)
  Receive Date: 20211220
  Receipt Date: 20211230
  Transmission Date: 20220303
  Serious: Yes (Other)
  Sender: FDA-Public Use
  Company Number: US-NOVARTISPH-NVSC2021US280277

PATIENT
  Sex: Male

DRUGS (21)
  1. VIVELLE [Suspect]
     Active Substance: ESTRADIOL
     Indication: Product used for unknown indication
     Dosage: UNK
     Route: 065
     Dates: start: 200609
  2. VIVELLE [Suspect]
     Active Substance: ESTRADIOL
     Dosage: UNK (INCREASED TO 2 PATCHES)
     Route: 065
     Dates: start: 201612
  3. VIVELLE [Suspect]
     Active Substance: ESTRADIOL
     Dosage: UNK( INCREASED TO 6 PATCHES WEEKLY)
     Route: 065
     Dates: start: 201711
  4. KETOCONAZOLE [Suspect]
     Active Substance: KETOCONAZOLE
     Indication: Product used for unknown indication
     Dosage: UNK
     Route: 065
     Dates: start: 200609
  5. ZOMETA [Suspect]
     Active Substance: ZOLEDRONIC ACID
     Indication: Product used for unknown indication
     Dosage: UNK
     Route: 065
     Dates: end: 200609
  6. DEXAMETHASONE [Suspect]
     Active Substance: DEXAMETHASONE
     Indication: Product used for unknown indication
     Dosage: UNK
     Route: 065
     Dates: start: 202106
  7. AVODART [Suspect]
     Active Substance: DUTASTERIDE
     Indication: Product used for unknown indication
     Dosage: UNK
     Route: 065
     Dates: start: 200609
  8. XTANDI [Suspect]
     Active Substance: ENZALUTAMIDE
     Indication: Product used for unknown indication
     Dosage: UNK
     Route: 065
     Dates: start: 2004
  9. XTANDI [Suspect]
     Active Substance: ENZALUTAMIDE
     Dosage: UNK
     Route: 065
     Dates: start: 2014
  10. XTANDI [Suspect]
     Active Substance: ENZALUTAMIDE
     Dosage: UNK (LOWERED)
     Route: 065
     Dates: start: 201611, end: 202003
  11. XOFIGO [Suspect]
     Active Substance: RADIUM RA-223 DICHLORIDE
     Indication: Product used for unknown indication
     Dosage: UNK
     Route: 065
     Dates: start: 2004
  12. XOFIGO [Suspect]
     Active Substance: RADIUM RA-223 DICHLORIDE
     Dosage: UNK
     Route: 065
     Dates: start: 2014
  13. PROVENGE [Suspect]
     Active Substance: SIPULEUCEL-T
     Indication: Product used for unknown indication
     Dosage: UNK
     Route: 065
     Dates: start: 201610
  14. ZYTIGA [Suspect]
     Active Substance: ABIRATERONE ACETATE
     Indication: Product used for unknown indication
     Dosage: UNK
     Route: 065
     Dates: start: 201611, end: 202003
  15. ZYTIGA [Suspect]
     Active Substance: ABIRATERONE ACETATE
     Dosage: UNK
     Route: 065
     Dates: start: 202103, end: 202106
  16. INSPRA [Suspect]
     Active Substance: EPLERENONE
     Indication: Product used for unknown indication
     Dosage: UNK
     Route: 065
     Dates: start: 201611
  17. INSPRA [Suspect]
     Active Substance: EPLERENONE
     Dosage: UNK
     Route: 065
     Dates: start: 202103, end: 202106
  18. KEYTRUDA [Suspect]
     Active Substance: PEMBROLIZUMAB
     Indication: Product used for unknown indication
     Dosage: UNK
     Route: 065
     Dates: start: 201805, end: 201806
  19. TAXOTERE [Suspect]
     Active Substance: DOCETAXEL
     Indication: Product used for unknown indication
     Dosage: UNK
     Route: 065
     Dates: start: 202003
  20. JEVTANA [Suspect]
     Active Substance: CABAZITAXEL
     Indication: Product used for unknown indication
     Dosage: 10 MG/M2
     Route: 065
     Dates: start: 202106
  21. JEVTANA [Suspect]
     Active Substance: CABAZITAXEL
     Dosage: 15 MG/M2
     Route: 065
     Dates: start: 202109

REACTIONS (2)
  - Prostate cancer metastatic [Unknown]
  - Metastases to bone [Unknown]
